FAERS Safety Report 25069421 (Version 2)
Quarter: 2025Q1

REPORT INFORMATION
  Report Type: Spontaneous
  Country: US (occurrence: US)
  Receive Date: 20250312
  Receipt Date: 20250328
  Transmission Date: 20250408
  Serious: Yes (Hospitalization, Other)
  Sender: JEROME STEVENS
  Company Number: US-Jerome Stevens Pharmaceuticals, Inc.-2172724

PATIENT
  Age: 81 Year
  Sex: Male

DRUGS (2)
  1. DIGOXIN [Suspect]
     Active Substance: DIGOXIN
     Indication: Atrial fibrillation
  2. APIXABAN [Concomitant]
     Active Substance: APIXABAN

REACTIONS (2)
  - BRASH syndrome [Recovering/Resolving]
  - Toxicity to various agents [Recovering/Resolving]
